FAERS Safety Report 9016466 (Version 1)
Quarter: 2013Q1

REPORT INFORMATION
  Report Type: Spontaneous
  Country: US (occurrence: US)
  Receive Date: 20130116
  Receipt Date: 20130116
  Transmission Date: 20140127
  Serious: No
  Sender: FDA-Public Use
  Company Number: US-TEVA-380886USA

PATIENT
  Age: 22 Year
  Sex: Female
  Weight: 66.74 kg

DRUGS (4)
  1. PLAN B ONE-STEP [Suspect]
     Indication: POST COITAL CONTRACEPTION
     Dosage: 1.5 MILLIGRAM DAILY;
     Route: 048
     Dates: start: 20130111, end: 20130111
  2. PREDNISONE [Concomitant]
     Indication: ARTHRITIS
  3. METHOTREXATE [Concomitant]
     Indication: ARTHRITIS
  4. PLAQUENIL [Concomitant]
     Indication: ARTHRITIS

REACTIONS (1)
  - Nausea [Not Recovered/Not Resolved]
